FAERS Safety Report 7748246-9 (Version None)
Quarter: 2011Q3

REPORT INFORMATION
  Report Type: 
  Country: None (occurrence: None)
  Receive Date: 20110913
  Receipt Date: 20110829
  Transmission Date: 20111222
  Serious: Yes (Hospitalization)
  Sender: FDA-Public Use
  Company Number: US-ARROW GEN-2011-14413

PATIENT
  Age: 65 Year
  Sex: Female

DRUGS (6)
  1. CLONIDINE [Suspect]
     Dosage: 0.1 MG, BID
  2. METOPROLOL TARTRATE [Suspect]
     Indication: HYPERTENSION
     Dosage: 50 MG, BID
  3. LISINOPRIL [Suspect]
     Indication: HYPERTENSION
     Dosage: 40 MG, DAILY
  4. FUROSEMIDE [Suspect]
     Indication: HYPERTENSION
     Dosage: 80 MG, BID
  5. HYDRALAZINE HCL [Suspect]
     Indication: HYPERTENSION
     Dosage: 100 MG, BID
  6. AMLODIPINE BESYLATE [Suspect]
     Indication: HYPERTENSION
     Dosage: 10 MG, DAILY

REACTIONS (4)
  - DYSARTHRIA [None]
  - SINUS BRADYCARDIA [None]
  - SINUS ARRHYTHMIA [None]
  - VISION BLURRED [None]
